FAERS Safety Report 14979853 (Version 2)
Quarter: 2018Q2

REPORT INFORMATION
  Report Type: Spontaneous
  Country: IE (occurrence: IE)
  Receive Date: 20180606
  Receipt Date: 20180627
  Transmission Date: 20180711
  Serious: Yes (Hospitalization, Other)
  Sender: FDA-Public Use
  Company Number: IE-BAYER-2018-101996

PATIENT
  Age: 66 Year
  Sex: Male

DRUGS (3)
  1. XOFIGO [Suspect]
     Active Substance: RADIUM RA-223 DICHLORIDE
     Indication: PROSTATE CANCER METASTATIC
     Dosage: 4.302 MBQ
     Dates: start: 20180417, end: 20180417
  2. XOFIGO [Suspect]
     Active Substance: RADIUM RA-223 DICHLORIDE
     Indication: PROSTATE CANCER METASTATIC
     Dosage: 4.399 MBQ
     Dates: start: 20180320, end: 20180320
  3. XOFIGO [Suspect]
     Active Substance: RADIUM RA-223 DICHLORIDE
     Indication: PROSTATE CANCER METASTATIC
     Dosage: 4.23 MBQ
     Dates: start: 20180515, end: 20180515

REACTIONS (2)
  - Fall [Recovered/Resolved]
  - Orthopaedic procedure [Recovered/Resolved]

NARRATIVE: CASE EVENT DATE: 20180526
